FAERS Safety Report 8914145 (Version 1)
Quarter: 2012Q4

REPORT INFORMATION
  Report Type: 
  Country: US (occurrence: US)
  Receive Date: 20121116
  Receipt Date: 20121116
  Transmission Date: 20130627
  Serious: Yes (Other)
  Sender: FDA-Public Use
  Company Number: US-ASTRAZENECA-2012SE85238

PATIENT
  Age: 65 Year
  Sex: Female

DRUGS (1)
  1. NEXIUM [Suspect]
     Route: 048

REACTIONS (7)
  - Hepatitis C [Unknown]
  - Musculoskeletal discomfort [Unknown]
  - Aphagia [Unknown]
  - Hypertension [Unknown]
  - Irritable bowel syndrome [Unknown]
  - Feeling abnormal [Unknown]
  - Drug ineffective [Unknown]
